FAERS Safety Report 12379849 (Version 1)
Quarter: 2016Q2

REPORT INFORMATION
  Report Type: Report from Study
  Country: PE (occurrence: PE)
  Receive Date: 20160518
  Receipt Date: 20160518
  Transmission Date: 20160815
  Serious: Yes (Death)
  Sender: FDA-Public Use
  Company Number: PE-ASTRAZENECA-2016SE52213

PATIENT
  Age: 30597 Day
  Sex: Female

DRUGS (1)
  1. ATACAND PLUS [Suspect]
     Active Substance: CANDESARTAN CILEXETIL\HYDROCHLOROTHIAZIDE
     Dosage: 16/12.5 MG, TWO TIMES A DAY
     Route: 048
     Dates: start: 20080523

REACTIONS (1)
  - Death [Fatal]

NARRATIVE: CASE EVENT DATE: 20160427
